FAERS Safety Report 4506560-4 (Version None)
Quarter: 2004Q4

REPORT INFORMATION
  Report Type: 
  Country: None (occurrence: None)
  Receive Date: 20041117
  Receipt Date: 20041104
  Transmission Date: 20050328
  Serious: Yes (Other)
  Sender: FDA-Public Use
  Company Number: 2004066646

PATIENT
  Age: 76 Year
  Sex: Male
  Weight: 93.441 kg

DRUGS (10)
  1. LIPITOR [Suspect]
     Indication: BLOOD CHOLESTEROL INCREASED
     Dosage: ORAL
     Route: 048
  2. LIPITOR [Suspect]
     Indication: CEREBROVASCULAR ACCIDENT
     Dosage: ORAL
     Route: 048
  3. NORVASC [Suspect]
     Indication: CEREBROVASCULAR ACCIDENT
     Dosage: ORAL
     Route: 048
  4. NORVASC [Suspect]
     Indication: HYPERTENSION
     Dosage: ORAL
     Route: 048
  5. CLOPIDOGREL BISULFATE [Concomitant]
  6. ESOMEPRAZOLE (ESOMEPRAZOLE) [Concomitant]
  7. ATENOLOL [Concomitant]
  8. DIAZEPAM [Concomitant]
  9. ISOSORBIDE MONONITRATE [Concomitant]
  10. ASPIRIN [Concomitant]

REACTIONS (1)
  - NO ADVERSE DRUG EFFECT [None]
